FAERS Safety Report 9796932 (Version 1)
Quarter: 2014Q1

REPORT INFORMATION
  Report Type: Spontaneous
  Country: US (occurrence: US)
  Receive Date: 20140104
  Receipt Date: 20140104
  Transmission Date: 20141002
  Serious: Yes (Death, Other)
  Sender: FDA-Public Use
  Company Number: US-UCBSA-107632

PATIENT
  Age: 38 Year
  Sex: Female

DRUGS (7)
  1. ALPRAZOLAM [Suspect]
     Dosage: ROUTE: INGESTION + UNKNOWN
  2. OXYCODONE [Suspect]
     Dosage: ROUTE: INGESTION + UNKNOWN
  3. METHADONE [Suspect]
     Dosage: ROUTE: INGESTION + UNKNOWN
  4. DIAZEPAM [Suspect]
     Dosage: ROUTE: INGESTION + UNKNOWN
  5. COCAINE [Suspect]
     Dosage: ROUTE: INGESTION + UNKNOWN
  6. CITALOPRAM [Suspect]
     Dosage: ROUTE: INGESTION + UNKNOWN
  7. ACETAMINOPHEN/HYDROCODONE [Suspect]
     Dosage: ROUTE: INGESTION + UNKNOWN

REACTIONS (1)
  - Drug abuse [Fatal]
